FAERS Safety Report 25103663 (Version 1)
Quarter: 2025Q1

REPORT INFORMATION
  Report Type: Report from Study
  Country: CA (occurrence: CA)
  Receive Date: 20250321
  Receipt Date: 20250321
  Transmission Date: 20250409
  Serious: Yes (Hospitalization)
  Sender: ABBVIE
  Company Number: CA-ABBVIE-6180705

PATIENT
  Sex: Female

DRUGS (1)
  1. SKYRIZI [Suspect]
     Active Substance: RISANKIZUMAB-RZAA
     Indication: Crohn^s disease
     Route: 058

REACTIONS (7)
  - Anastomotic ulcer [Unknown]
  - Inflammatory marker increased [Unknown]
  - Dehydration [Unknown]
  - Blood potassium abnormal [Unknown]
  - Blood sodium abnormal [Unknown]
  - Malabsorption [Unknown]
  - Anaemia [Unknown]
